FAERS Safety Report 10657965 (Version 1)
Quarter: 2014Q4

REPORT INFORMATION
  Report Type: Spontaneous
  Country: US (occurrence: US)
  Receive Date: 20141217
  Receipt Date: 20141217
  Transmission Date: 20150529
  Serious: No
  Sender: FDA-Public Use
  Company Number: US-GLAXOSMITHKLINE-A1058309A

PATIENT

DRUGS (1)
  1. VOTRIENT [Suspect]
     Active Substance: PAZOPANIB HYDROCHLORIDE
     Indication: RENAL CANCER
     Dosage: 200 MG AT 3 TABLETS (600 MG) DAILY)
     Dates: start: 20120926

REACTIONS (3)
  - Diarrhoea [Unknown]
  - Ill-defined disorder [Unknown]
  - Nausea [Unknown]
